FAERS Safety Report 14755928 (Version 2)
Quarter: 2018Q3

REPORT INFORMATION
  Report Type: Spontaneous
  Country: US (occurrence: US)
  Receive Date: 20180413
  Receipt Date: 20180813
  Transmission Date: 20181010
  Serious: No
  Sender: FDA-Public Use
  Company Number: US-PFIZER INC-2018152706

PATIENT
  Age: 78 Year
  Sex: Female
  Weight: 84.35 kg

DRUGS (3)
  1. ADVIL [Concomitant]
     Active Substance: IBUPROFEN
     Indication: LIMB INJURY
     Dosage: UNK
  2. ADVIL [Concomitant]
     Active Substance: IBUPROFEN
     Dosage: 1 DF, 1X/DAY (1 EVERY MORNING BY MOUTH)
     Route: 048
  3. LYRICA [Suspect]
     Active Substance: PREGABALIN
     Indication: PAIN
     Dosage: 75 MG, 2X/DAY
     Route: 048
     Dates: start: 2017

REACTIONS (3)
  - Expired product administered [Unknown]
  - Arthritis [Unknown]
  - Pain [Not Recovered/Not Resolved]
